FAERS Safety Report 9339056 (Version 1)
Quarter: 2013Q2

REPORT INFORMATION
  Report Type: Spontaneous
  Country: US (occurrence: None)
  Receive Date: 20130606
  Receipt Date: 20130606
  Transmission Date: 20140414
  Serious: Yes (Hospitalization)
  Sender: FDA-Public Use
  Company Number: None

PATIENT
  Age: 57 Year
  Sex: Male
  Weight: 85.7 kg

DRUGS (11)
  1. DEXMEDETOMIDINE [Suspect]
     Indication: SEDATION
     Dosage: 0.1 TO 0.2 MICROGRAM/KG/HOUR
     Route: 042
     Dates: start: 20130514
  2. ASPIRIN [Concomitant]
  3. FENTANYL DRIP [Concomitant]
  4. COLACE [Concomitant]
  5. VITAMIN D [Concomitant]
  6. SENNA [Concomitant]
  7. ZOSYN [Concomitant]
  8. LEVAQUIN [Concomitant]
  9. VANCOMYCIN [Concomitant]
  10. NEXIUM IV [Concomitant]
  11. LOVENOX SQ [Concomitant]

REACTIONS (1)
  - Hepatitis [None]
